FAERS Safety Report 18733508 (Version 1)
Quarter: 2021Q1

REPORT INFORMATION
  Report Type: Spontaneous
  Country: CN (occurrence: CN)
  Receive Date: 20210113
  Receipt Date: 20210113
  Transmission Date: 20210419
  Serious: Yes (Other)
  Sender: FDA-Public Use
  Company Number: CN-SPECGX-T202100040

PATIENT
  Age: 63 Year
  Sex: Female
  Weight: 80 kg

DRUGS (2)
  1. BUCINNAZINE [Suspect]
     Active Substance: BUCINNAZINE
     Indication: ANALGESIC THERAPY
     Dosage: UNK
     Route: 065
     Dates: start: 20201223, end: 20201223
  2. OXYCODONE/ACETAMINOPHEN [Suspect]
     Active Substance: ACETAMINOPHEN\OXYCODONE HYDROCHLORIDE
     Indication: ARTHRALGIA
     Dosage: 1 DOSAGE FORM, QD
     Route: 048
     Dates: start: 20201222, end: 20201222

REACTIONS (5)
  - Dyspnoea [Recovering/Resolving]
  - Urticaria [Recovered/Resolved]
  - Chest discomfort [Recovering/Resolving]
  - Pruritus [Recovered/Resolved]
  - Drug hypersensitivity [Recovered/Resolved]

NARRATIVE: CASE EVENT DATE: 20201223
